FAERS Safety Report 13671407 (Version 1)
Quarter: 2017Q2

REPORT INFORMATION
  Report Type: Spontaneous
  Country: US (occurrence: US)
  Receive Date: 20170620
  Receipt Date: 20170620
  Transmission Date: 20170830
  Serious: No
  Sender: FDA-Public Use
  Company Number: US-ROCHE-1190145

PATIENT
  Sex: Female
  Weight: 66.28 kg

DRUGS (2)
  1. XELODA [Suspect]
     Active Substance: CAPECITABINE
     Indication: BREAST CANCER METASTATIC
     Dosage: 1000 MG IN MORNING AND 1000 MG AFTER DINNER
     Route: 048
     Dates: start: 201210
  2. XELODA [Suspect]
     Active Substance: CAPECITABINE
     Route: 048
     Dates: start: 20130325

REACTIONS (3)
  - Pollakiuria [Not Recovered/Not Resolved]
  - Sinusitis [Unknown]
  - Weight increased [Unknown]
